FAERS Safety Report 21530254 (Version 1)
Quarter: 2022Q4

REPORT INFORMATION
  Report Type: Spontaneous
  Country: US (occurrence: None)
  Receive Date: 20221030
  Receipt Date: 20221030
  Transmission Date: 20230112
  Serious: No
  Sender: FDA-Public Use
  Company Number: None

PATIENT
  Age: 58 Year
  Sex: Female
  Weight: 70.2 kg

DRUGS (4)
  1. EVUSHELD [Suspect]
     Active Substance: CILGAVIMAB\TIXAGEVIMAB
     Indication: Product used for unknown indication
     Route: 030
     Dates: start: 20221027, end: 20221027
  2. CELLCEPT [Concomitant]
     Active Substance: MYCOPHENOLATE MOFETIL
  3. METHOTREXATE [Concomitant]
     Active Substance: METHOTREXATE
  4. plaquinal [Concomitant]

REACTIONS (1)
  - Diarrhoea [None]
